FAERS Safety Report 25542128 (Version 1)
Quarter: 2025Q3

REPORT INFORMATION
  Report Type: Spontaneous
  Country: US (occurrence: US)
  Receive Date: 20250711
  Receipt Date: 20250711
  Transmission Date: 20251020
  Serious: Yes (Hospitalization, Other)
  Sender: ORGANON
  Company Number: US-MERCK-1003USA01349

PATIENT
  Sex: Female
  Weight: 80.739 kg

DRUGS (5)
  1. FOSAMAX [Suspect]
     Active Substance: ALENDRONATE SODIUM
     Indication: Osteoporosis
     Route: 048
     Dates: start: 19980417, end: 200901
  2. FOSAMAX [Suspect]
     Active Substance: ALENDRONATE SODIUM
     Indication: Osteopenia
  3. VITAMINS NOS [Concomitant]
     Active Substance: VITAMINS
  4. ATENOLOL [Concomitant]
     Active Substance: ATENOLOL
     Indication: Hypertension
     Dosage: 50 MG, QD
     Dates: start: 199703
  5. HYDROCHLOROTHIAZIDE [Concomitant]
     Active Substance: HYDROCHLOROTHIAZIDE
     Indication: Hypertension
     Dosage: 25 MG, QD
     Dates: start: 199703

REACTIONS (28)
  - Femur fracture [Recovered/Resolved]
  - Femur fracture [Recovered/Resolved]
  - Impaired healing [Unknown]
  - Impaired healing [Unknown]
  - Fall [Unknown]
  - Femur fracture [Recovered/Resolved]
  - Intramedullary rod insertion [Unknown]
  - Intramedullary rod insertion [Unknown]
  - Femoral neck fracture [Unknown]
  - Ilium fracture [Unknown]
  - Skin laceration [Unknown]
  - Hyperlipidaemia [Unknown]
  - Rhinorrhoea [Unknown]
  - Cough [Unknown]
  - Arthropathy [Unknown]
  - Pelvic fluid collection [Unknown]
  - Ovarian cyst [Unknown]
  - Oligomenorrhoea [Unknown]
  - Arthropathy [Unknown]
  - Premenstrual syndrome [Unknown]
  - Incontinence [Unknown]
  - Medical device removal [Unknown]
  - Muscle atrophy [Unknown]
  - Joint effusion [Unknown]
  - Tendon disorder [Unknown]
  - Arthralgia [Unknown]
  - Constipation [Unknown]
  - Atrophic vulvovaginitis [Unknown]

NARRATIVE: CASE EVENT DATE: 19990310
